FAERS Safety Report 6045539-0 (Version None)
Quarter: 2009Q1

REPORT INFORMATION
  Report Type: 
  Country: None (occurrence: None)
  Receive Date: 20090121
  Receipt Date: 20090116
  Transmission Date: 20090719
  Serious: Yes (Hospitalization, Disabling)
  Sender: FDA-Public Use
  Company Number: B0554488A

PATIENT
  Age: 63 Year
  Sex: Male

DRUGS (5)
  1. EPIVIR [Suspect]
     Indication: HIV INFECTION
     Route: 048
     Dates: start: 20050930
  2. ZIAGEN [Suspect]
     Indication: HIV INFECTION
     Dosage: 300MG TWICE PER DAY
     Route: 048
     Dates: start: 20060330
  3. KALETRA [Suspect]
     Indication: HIV INFECTION
     Dosage: 4TAB PER DAY
     Route: 048
     Dates: start: 20061128
  4. ARTIST [Concomitant]
     Indication: VENTRICULAR TACHYCARDIA
     Dosage: 5MG TWICE PER DAY
     Route: 048
  5. SOTALOL HCL [Concomitant]
     Indication: VENTRICULAR TACHYCARDIA
     Dosage: 20MG TWICE PER DAY
     Route: 048

REACTIONS (4)
  - CEREBRAL HAEMORRHAGE [None]
  - GAMMA-GLUTAMYLTRANSFERASE INCREASED [None]
  - SPEECH DISORDER [None]
  - VOMITING [None]
